FAERS Safety Report 6062884-3 (Version None)
Quarter: 2009Q1

REPORT INFORMATION
  Report Type: 
  Country: None (occurrence: None)
  Receive Date: 20090202
  Receipt Date: 20090202
  Transmission Date: 20090719
  Serious: Yes (Hospitalization)
  Sender: FDA-Public Use
  Company Number: None

PATIENT
  Age: 70 Year
  Sex: Female
  Weight: 73.9363 kg

DRUGS (2)
  1. REMICADE [Suspect]
     Indication: RHEUMATOID ARTHRITIS
     Dosage: INITIAL DOSE IV DRIP; 2ND DOSE IV DRIP
     Route: 041
     Dates: start: 20081015, end: 20081104
  2. REMICADE [Suspect]
     Indication: RHEUMATOID ARTHRITIS
     Dosage: INITIAL DOSE IV DRIP; 2ND DOSE IV DRIP
     Route: 041
     Dates: start: 20081104, end: 20081204

REACTIONS (7)
  - ARTHRITIS [None]
  - BEDRIDDEN [None]
  - CONDITION AGGRAVATED [None]
  - FATIGUE [None]
  - MYALGIA [None]
  - PAIN [None]
  - RHEUMATOID ARTHRITIS [None]
